FAERS Safety Report 20140092 (Version 2)
Quarter: 2021Q4

REPORT INFORMATION
  Report Type: Spontaneous
  Country: US (occurrence: None)
  Receive Date: 20211202
  Receipt Date: 20211203
  Transmission Date: 20220303
  Serious: Yes (Other)
  Sender: FDA-Public Use
  Company Number: 2021A822813

PATIENT
  Age: 9 Year
  Sex: Male
  Weight: 37.8 kg

DRUGS (5)
  1. KOSELUGO [Suspect]
     Active Substance: SELUMETINIB
     Indication: Optic glioma
     Dosage: 25MG/ML TWO TIMES A DAY
     Route: 048
     Dates: start: 20210506
  2. KOSELUGO [Suspect]
     Active Substance: SELUMETINIB
     Indication: Optic glioma
     Dosage: ELD DRUG X 2WEEKS, REPEAT ECHO HAD NORMALIZED, RESTARTED DRUG AT 50% DOSING.
     Route: 048
  3. KOSELUGO [Suspect]
     Active Substance: SELUMETINIB
     Indication: Optic glioma
     Dosage: 100%
     Route: 048
  4. KEPPRA [Concomitant]
     Active Substance: LEVETIRACETAM
     Indication: Seizure
  5. EPIDIOLEX [Concomitant]
     Active Substance: CANNABIDIOL
     Indication: Seizure

REACTIONS (1)
  - Ejection fraction decreased [Recovered/Resolved]

NARRATIVE: CASE EVENT DATE: 20210729
